FAERS Safety Report 20350382 (Version 1)
Quarter: 2022Q1

REPORT INFORMATION
  Report Type: Spontaneous
  Country: FR (occurrence: FR)
  Receive Date: 20220119
  Receipt Date: 20220119
  Transmission Date: 20220423
  Serious: Yes (Hospitalization)
  Sender: FDA-Public Use
  Company Number: None

PATIENT
  Age: 50 Year
  Sex: Female

DRUGS (2)
  1. TRAMADOL [Suspect]
     Active Substance: TRAMADOL
     Indication: Depression
     Dosage: TRAMADOL (CHLORHYDRATE DE)
     Route: 048
     Dates: start: 20210902
  2. PAROXETINE [Concomitant]
     Active Substance: PAROXETINE
     Indication: Compulsive hoarding
     Dosage: 60 MILLIGRAM DAILY; 20 MG, 3 TABLETS IN THE MORNING
     Route: 048
     Dates: start: 20210902

REACTIONS (1)
  - Generalised tonic-clonic seizure [Not Recovered/Not Resolved]

NARRATIVE: CASE EVENT DATE: 20211202
